FAERS Safety Report 5431580-5 (Version None)
Quarter: 2007Q3

REPORT INFORMATION
  Report Type: 
  Country: None (occurrence: None)
  Receive Date: 20070828
  Receipt Date: 20070816
  Transmission Date: 20080115
  Serious: Yes (Other)
  Sender: FDA-Public Use
  Company Number: 236390K07USA

PATIENT
  Age: 43 Year
  Sex: Female

DRUGS (2)
  1. REBIF [Suspect]
     Indication: MULTIPLE SCLEROSIS
     Dosage: 44 MCG, 3 IN 1 WEEKS, SUBCUTANEOUS
     Route: 058
     Dates: start: 20070321
  2. IBUPROFEN [Concomitant]

REACTIONS (7)
  - ABDOMINAL PAIN UPPER [None]
  - BURNING SENSATION [None]
  - GALLBLADDER DISORDER [None]
  - HEPATIC ENZYME INCREASED [None]
  - INFREQUENT BOWEL MOVEMENTS [None]
  - INJECTION SITE IRRITATION [None]
  - NAUSEA [None]
